FAERS Safety Report 23821063 (Version 1)
Quarter: 2024Q2

REPORT INFORMATION
  Report Type: Spontaneous
  Country: PT (occurrence: PT)
  Receive Date: 20240506
  Receipt Date: 20240506
  Transmission Date: 20240716
  Serious: Yes (Hospitalization, Other)
  Sender: FDA-Public Use
  Company Number: PT-INSUD PHARMA-2404PT03631

PATIENT

DRUGS (2)
  1. TESTOSTERONE [Suspect]
     Active Substance: TESTOSTERONE
     Indication: Muscle building therapy
     Dosage: EVERY 3 MONTHS
     Route: 030
  2. NANDROLONE [Suspect]
     Active Substance: NANDROLONE
     Indication: Muscle building therapy
     Dosage: EVERY 3 MONTHS
     Route: 030

REACTIONS (7)
  - Acute coronary syndrome [Recovered/Resolved]
  - Acute myocardial infarction [Recovered/Resolved]
  - Arteriosclerosis coronary artery [Recovered/Resolved]
  - Chest pain [Recovered/Resolved]
  - Dyslipidaemia [Recovered/Resolved]
  - Drug abuse [Not Recovered/Not Resolved]
  - Toxic cardiomyopathy [Unknown]
